FAERS Safety Report 19873710 (Version 2)
Quarter: 2025Q4

REPORT INFORMATION
  Report Type: Spontaneous
  Country: CA (occurrence: CA)
  Receive Date: 20210923
  Receipt Date: 20251110
  Transmission Date: 20260118
  Serious: Yes (Hospitalization, Other)
  Sender: ACCORD
  Company Number: None

PATIENT
  Age: 62 Year
  Sex: Male

DRUGS (5)
  1. QUETIAPINE FUMARATE [Suspect]
     Active Substance: QUETIAPINE FUMARATE
     Indication: Agitation
     Dosage: 4 EVERY 1 DAYS
     Route: 048
  2. HALOPERIDOL DECANOATE [Suspect]
     Active Substance: HALOPERIDOL DECANOATE
     Indication: Agitation
     Dosage: LIQUID INTRAMUSCULAR
     Route: 065
  3. LORAZEPAM [Suspect]
     Active Substance: LORAZEPAM
     Indication: Clonus
     Route: 065
  4. METOCLOPRAMIDE [Suspect]
     Active Substance: METOCLOPRAMIDE
     Indication: Malabsorption
     Dosage: 4 EVERY 1 DAYS
     Route: 065
  5. MIDAZOLAM [Suspect]
     Active Substance: MIDAZOLAM
     Indication: Clonus
     Route: 065

REACTIONS (4)
  - Drug ineffective [Unknown]
  - Dystonia [Unknown]
  - Depressed level of consciousness [Unknown]
  - Off label use [Unknown]
